FAERS Safety Report 6479653-2 (Version None)
Quarter: 2009Q4

REPORT INFORMATION
  Report Type: 
  Country: None (occurrence: None)
  Receive Date: 20091208
  Receipt Date: 20091130
  Transmission Date: 20100525
  Serious: Yes (Other)
  Sender: FDA-Public Use
  Company Number: AU-SANOFI-AVENTIS-2009SA005461

PATIENT
  Sex: Male

DRUGS (3)
  1. STILNOX [Suspect]
     Indication: DRUG USE FOR UNKNOWN INDICATION
     Route: 048
     Dates: start: 20091127, end: 20091127
  2. STILNOX [Interacting]
     Indication: INTENTIONAL OVERDOSE
     Route: 048
     Dates: start: 20091127, end: 20091127
  3. ALCOHOL [Interacting]
     Indication: ALCOHOL USE
     Route: 048
     Dates: start: 20091127, end: 20091127

REACTIONS (4)
  - ALCOHOL INTERACTION [None]
  - AMNESIA [None]
  - INTENTIONAL OVERDOSE [None]
  - ROAD TRAFFIC ACCIDENT [None]
